FAERS Safety Report 19589255 (Version 1)
Quarter: 2021Q3

REPORT INFORMATION
  Report Type: Spontaneous
  Country: US (occurrence: US)
  Receive Date: 20210721
  Receipt Date: 20210721
  Transmission Date: 20211014
  Serious: Yes (Disabling)
  Sender: FDA-Public Use
  Company Number: US-PFIZER INC-2021853931

PATIENT
  Age: 52 Year
  Sex: Female

DRUGS (1)
  1. XELJANZ [Suspect]
     Active Substance: TOFACITINIB CITRATE
     Dosage: 5 MG

REACTIONS (7)
  - Infection [Unknown]
  - Sensitive skin [Unknown]
  - Pain [Unknown]
  - Deformity [Unknown]
  - Crying [Unknown]
  - Pain in extremity [Unknown]
  - Condition aggravated [Unknown]
